FAERS Safety Report 10260893 (Version 2)
Quarter: 2014Q2

REPORT INFORMATION
  Report Type: Spontaneous
  Country: AT (occurrence: AU)
  Receive Date: 20140626
  Receipt Date: 20140626
  Transmission Date: 20141212
  Serious: Yes (Other)
  Sender: FDA-Public Use
  Company Number: PHHY2014AU072060

PATIENT
  Sex: Female

DRUGS (8)
  1. MYCOPHENOLATE [Suspect]
     Indication: CHRONIC SPONTANEOUS URTICARIA
     Dosage: UNK
  2. MYCOPHENOLATE [Suspect]
     Indication: OFF LABEL USE
  3. CICLOSPORIN [Suspect]
     Indication: CHRONIC SPONTANEOUS URTICARIA
     Dosage: UNK
  4. CICLOSPORIN [Suspect]
     Indication: OFF LABEL USE
  5. PREDNISOLONE [Suspect]
     Dosage: UNK
  6. AZATHIOPRINE [Suspect]
     Dosage: UNK
  7. METHOTREXATE [Suspect]
     Dosage: UNK
  8. ANTIHISTAMINES [Suspect]
     Dosage: UNK

REACTIONS (7)
  - Diabetes mellitus [Unknown]
  - Sleep disorder [Unknown]
  - Hypertension [Unknown]
  - Overweight [Unknown]
  - Hypersensitivity [Unknown]
  - Drug ineffective [Unknown]
  - Drug effect incomplete [Unknown]
